FAERS Safety Report 8611918 (Version 10)
Quarter: 2017Q4

REPORT INFORMATION
  Report Type: Report from Study
  Country: DE (occurrence: DE)
  Receive Date: 20120613
  Receipt Date: 20171023
  Transmission Date: 20180321
  Serious: Yes (Hospitalization)
  Sender: FDA-Public Use
  Company Number: PHHY2012DE004006

PATIENT
  Age: 54 Year
  Sex: Female

DRUGS (9)
  1. HEPARIN [Concomitant]
     Active Substance: HEPARIN SODIUM
     Indication: PRODUCT USED FOR UNKNOWN INDICATION
     Dosage: UNK
     Route: 065
  2. EXTAVIA [Suspect]
     Active Substance: INTERFERON BETA-1B
     Indication: MULTIPLE SCLEROSIS
     Dosage: 250 UG/ML/1.0 ML, QOD
     Route: 058
     Dates: start: 20090904
  3. MAGNESIUM VERLA [Concomitant]
     Active Substance: MAGNESIUM
     Indication: MUSCLE SPASMS
     Dosage: 2 DF, QD (0-0-0-2 PER DAY), FOR A LONG TIME
     Route: 048
  4. EXTAVIA [Suspect]
     Active Substance: INTERFERON BETA-1B
     Dosage: 250 UG/ML/1.0 ML, QOD
     Route: 058
     Dates: start: 20090904
  5. VERAPAMIL [Concomitant]
     Active Substance: VERAPAMIL HYDROCHLORIDE
     Indication: BLOOD PRESSURE ABNORMAL
     Dosage: 0.5 DF, BID (120 AT ?-0-?-0 PER DAY), FOR A LONG TIME
     Route: 048
  6. GABAPENTIN. [Concomitant]
     Active Substance: GABAPENTIN
     Indication: PAIN
     Dosage: 0.5 DF, QD (600 AT 0-0-0-? PER DAY),  FOR A LONG TIME
     Route: 048
  7. IBUHEXAL [Concomitant]
     Active Substance: IBUPROFEN
     Indication: PAIN
     Dosage: 1 DF, QD, (0-0-0-1 PER DAY), FOR A LONG TIME
     Route: 048
  8. MULTI VITAMIN [Concomitant]
     Active Substance: VITAMINS
     Indication: SELF-MEDICATION
     Dosage: 1 DF, BID, (1-0-1-0 PER DAY), FOR A LONG TIME
     Route: 048
  9. TORASEMIDE [Concomitant]
     Active Substance: TORSEMIDE
     Indication: FLUID RETENTION
     Dosage: 1 DF, QD (0-0-0-1 PER DAY), FOR A LONG TIME
     Route: 048

REACTIONS (7)
  - Chills [Recovered/Resolved]
  - Injection site erythema [Not Recovered/Not Resolved]
  - Type 2 diabetes mellitus [Recovered/Resolved]
  - Injection site induration [Recovering/Resolving]
  - Pyrexia [Recovered/Resolved]
  - Headache [Recovered/Resolved]
  - Multiple sclerosis relapse [Recovered/Resolved]

NARRATIVE: CASE EVENT DATE: 201201
